FAERS Safety Report 25305927 (Version 1)
Quarter: 2025Q2

REPORT INFORMATION
  Report Type: Spontaneous
  Country: US (occurrence: US)
  Receive Date: 20250513
  Receipt Date: 20250513
  Transmission Date: 20250717
  Serious: No
  Sender: CSL BEHRING
  Company Number: US-BEH-2024177514

PATIENT
  Age: 34 Year
  Sex: Male
  Weight: 115.7 kg

DRUGS (2)
  1. HEMGENIX [Suspect]
     Active Substance: ETRANACOGENE DEZAPARVOVEC
     Route: 042
     Dates: start: 20240731
  2. DIPHENHYDRAMINE [Concomitant]
     Active Substance: DIPHENHYDRAMINE
     Route: 042
     Dates: start: 20240731

REACTIONS (10)
  - Infusion related reaction [Recovering/Resolving]
  - Muscle tightness [Recovering/Resolving]
  - Flushing [Recovering/Resolving]
  - Headache [Recovering/Resolving]
  - Chest discomfort [Recovering/Resolving]
  - Discomfort [Recovering/Resolving]
  - Chest discomfort [Recovering/Resolving]
  - Muscle tightness [Recovering/Resolving]
  - Musculoskeletal discomfort [Recovering/Resolving]
  - Erythema [Recovering/Resolving]

NARRATIVE: CASE EVENT DATE: 20240731
